FAERS Safety Report 10549173 (Version 2)
Quarter: 2014Q4

REPORT INFORMATION
  Report Type: Spontaneous
  Country: US (occurrence: US)
  Receive Date: 20141028
  Receipt Date: 20141028
  Transmission Date: 20150529
  Serious: Yes (Hospitalization, Other)
  Sender: FDA-Public Use
  Company Number: US-GILEAD-2014-0106212

PATIENT
  Age: 14 Year
  Sex: Male

DRUGS (7)
  1. FLOLAN [Concomitant]
     Active Substance: EPOPROSTENOL SODIUM
  2. LETAIRIS [Suspect]
     Active Substance: AMBRISENTAN
     Indication: PULMONARY ARTERIAL HYPERTENSION
     Dosage: 5 MG, QD
     Route: 065
     Dates: start: 20140513
  3. LASIX [Concomitant]
     Active Substance: FUROSEMIDE
  4. MILRINONE [Concomitant]
     Active Substance: MILRINONE
  5. ALDACTONE [Concomitant]
     Active Substance: SPIRONOLACTONE
  6. ATENOLOL. [Concomitant]
     Active Substance: ATENOLOL
  7. SILDENAFIL. [Concomitant]
     Active Substance: SILDENAFIL

REACTIONS (1)
  - Heart and lung transplant [Unknown]

NARRATIVE: CASE EVENT DATE: 20140708
